FAERS Safety Report 5429061-8 (Version None)
Quarter: 2007Q3

REPORT INFORMATION
  Report Type: 
  Country: None (occurrence: None)
  Receive Date: 20070829
  Receipt Date: 20070604
  Transmission Date: 20080115
  Serious: No
  Sender: FDA-Public Use
  Company Number: A0654105A

PATIENT
  Age: 27 Year
  Sex: Female

DRUGS (4)
  1. MALARONE [Suspect]
     Indication: MALARIA
     Dosage: 1TAB PER DAY
     Route: 048
     Dates: start: 20070504, end: 20070519
  2. WELLBUTRIN [Concomitant]
  3. BIRTH CONTROL PILLS [Concomitant]
  4. ADVIL LIQUI-GELS [Concomitant]

REACTIONS (1)
  - ALOPECIA [None]
